FAERS Safety Report 8805884 (Version 2)
Quarter: 2012Q4

REPORT INFORMATION
  Report Type: 
  Country: SK (occurrence: SK)
  Receive Date: 20120925
  Receipt Date: 20120929
  Transmission Date: 20130627
  Serious: Yes (Hospitalization, Other)
  Sender: FDA-Public Use
  Company Number: SK-009507513-1209SVK008161

PATIENT
  Sex: Male
  Weight: 116 kg

DRUGS (6)
  1. REBETOL [Suspect]
     Indication: HEPATITIS C
     Dosage: UNK
     Dates: start: 200905, end: 201004
  2. REBETOL [Suspect]
     Dosage: UNK
     Dates: start: 20120702, end: 20120831
  3. PEGINTRON [Suspect]
     Indication: HEPATITIS C
     Dosage: UNK
     Dates: start: 200905, end: 201204
  4. PEGINTRON [Suspect]
     Dosage: UNK
     Dates: start: 20120702, end: 20120831
  5. VICTRELIS [Suspect]
     Indication: HEPATITIS C
     Dosage: UNK
     Dates: start: 20120730, end: 20120831
  6. LAGOSA [Concomitant]
     Indication: PROPHYLAXIS
     Dosage: UNK

REACTIONS (1)
  - Myocardial infarction [Recovered/Resolved]
